FAERS Safety Report 25391713 (Version 2)
Quarter: 2025Q3

REPORT INFORMATION
  Report Type: Report from Study
  Country: UY (occurrence: UY)
  Receive Date: 20250603
  Receipt Date: 20250709
  Transmission Date: 20251020
  Serious: Yes (Hospitalization, Other)
  Sender: ABBVIE
  Company Number: UY-ABBVIE-6170892

PATIENT
  Age: 49 Year
  Sex: Female

DRUGS (3)
  1. RINVOQ [Suspect]
     Active Substance: UPADACITINIB
     Indication: Rheumatoid arthritis
     Dosage: 30 TABLETS?FORM STRENGTH: 15 MG
     Route: 048
     Dates: start: 20241202
  2. RINVOQ [Suspect]
     Active Substance: UPADACITINIB
     Indication: Rheumatoid arthritis
     Dosage: 30 TABLETS?FORM STRENGTH: 15 MG
     Route: 048
  3. METHOTREXATE [Concomitant]
     Active Substance: METHOTREXATE
     Indication: Product used for unknown indication

REACTIONS (10)
  - Uterine leiomyoma [Recovering/Resolving]
  - Nephrolithiasis [Recovering/Resolving]
  - Dysuria [Unknown]
  - Polyp [Unknown]
  - Bladder pain [Not Recovered/Not Resolved]
  - Swelling [Not Recovered/Not Resolved]
  - Blood urine present [Unknown]
  - Escherichia infection [Recovering/Resolving]
  - Leiomyoma [Unknown]
  - Pain [Unknown]

NARRATIVE: CASE EVENT DATE: 20250101
